FAERS Safety Report 17171368 (Version 1)
Quarter: 2019Q4

REPORT INFORMATION
  Report Type: Spontaneous
  Country: US (occurrence: US)
  Receive Date: 20191218
  Receipt Date: 20191218
  Transmission Date: 20200122
  Serious: No
  Sender: FDA-Public Use
  Company Number: US-SUPERNUS PHARMACEUTICALS, INC.-2019SUP00097

PATIENT
  Age: 44 Year
  Sex: Female
  Weight: 94.33 kg

DRUGS (4)
  1. TROKENDI XR [Suspect]
     Active Substance: TOPIRAMATE
     Indication: ANXIETY
  2. KLONOPIN [Concomitant]
     Active Substance: CLONAZEPAM
  3. REXULTI [Concomitant]
     Active Substance: BREXPIPRAZOLE
  4. TROKENDI XR [Suspect]
     Active Substance: TOPIRAMATE
     Indication: DEPRESSION
     Dosage: 800 MG, 2X/DAY
     Route: 048
     Dates: start: 2018

REACTIONS (3)
  - Depressed mood [Not Recovered/Not Resolved]
  - Off label use [Not Recovered/Not Resolved]
  - Product dose omission [Not Recovered/Not Resolved]

NARRATIVE: CASE EVENT DATE: 2018
